FAERS Safety Report 16076923 (Version 1)
Quarter: 2019Q1

REPORT INFORMATION
  Report Type: Report from Study
  Country: US (occurrence: US)
  Receive Date: 20190315
  Receipt Date: 20190315
  Transmission Date: 20190418
  Serious: Yes (Life-Threatening, Other)
  Sender: FDA-Public Use
  Company Number: US-AMGEN-USACT2019035966

PATIENT
  Age: 14 Year
  Sex: Male
  Weight: 28.7 kg

DRUGS (4)
  1. CYCLOPHOSPHAMIDE. [Suspect]
     Active Substance: CYCLOPHOSPHAMIDE
     Indication: PERIPHERAL PRIMITIVE NEUROECTODERMAL TUMOUR OF SOFT TISSUE
     Dosage: 1200 MILLIGRAM/SQ. METER
     Route: 042
     Dates: end: 20180409
  2. ROMIPLOSTIM [Suspect]
     Active Substance: ROMIPLOSTIM
     Indication: PRODUCT USED FOR UNKNOWN INDICATION
     Dosage: UNK
     Route: 065
  3. DOXORUBICIN [Suspect]
     Active Substance: DOXORUBICIN
     Indication: PERIPHERAL PRIMITIVE NEUROECTODERMAL TUMOUR OF SOFT TISSUE
     Dosage: 37.5 MILLIGRAM/SQ. METER
     Route: 042
     Dates: end: 20180410
  4. AMG 479 [Suspect]
     Active Substance: GANITUMAB
     Indication: PERIPHERAL PRIMITIVE NEUROECTODERMAL TUMOUR OF SOFT TISSUE
     Dosage: 18 MILLIGRAM/KILOGRAM
     Route: 042
     Dates: end: 20180409

REACTIONS (2)
  - Myelodysplastic syndrome [Unknown]
  - Malignant neoplasm progression [None]

NARRATIVE: CASE EVENT DATE: 20190219
